FAERS Safety Report 6026668-4 (Version None)
Quarter: 2008Q4

REPORT INFORMATION
  Report Type: 
  Country: None (occurrence: None)
  Receive Date: 20081231
  Receipt Date: 20081218
  Transmission Date: 20090506
  Serious: Yes (Hospitalization)
  Sender: FDA-Public Use
  Company Number: 8040613

PATIENT
  Age: 36 Year
  Sex: Female
  Weight: 94.1 kg

DRUGS (8)
  1. CIMZIA [Suspect]
     Indication: CROHN'S DISEASE
     Dosage: 400 MG 1/2W SC
     Route: 058
     Dates: start: 20080528, end: 20080703
  2. CIMZIA [Suspect]
     Indication: CROHN'S DISEASE
     Dosage: 400 MG /M SC
     Route: 058
     Dates: start: 20080731, end: 20081024
  3. NEURONTIN [Concomitant]
  4. PENTASA [Concomitant]
  5. ZOLOFT [Concomitant]
  6. TIZANIDINE HCL [Concomitant]
  7. VITAMIN D [Concomitant]
  8. VITAMIN B12 /00056201/ [Concomitant]

REACTIONS (3)
  - PNEUMONIA [None]
  - STAPHYLOCOCCAL INFECTION [None]
  - TREATMENT NONCOMPLIANCE [None]
